FAERS Safety Report 17194227 (Version 1)
Quarter: 2019Q4

REPORT INFORMATION
  Report Type: Spontaneous
  Country: DE (occurrence: DE)
  Receive Date: 20191224
  Receipt Date: 20191224
  Transmission Date: 20200122
  Serious: Yes (Life-Threatening, Other)
  Sender: FDA-Public Use
  Company Number: DE-ROCHE-211319

PATIENT
  Age: 63 Year
  Sex: Female
  Weight: 93 kg

DRUGS (2)
  1. ROCEPHIN [Suspect]
     Active Substance: CEFTRIAXONE SODIUM
     Indication: LYME DISEASE
     Route: 042
     Dates: start: 19940909, end: 19941001
  2. ROCEPHIN [Suspect]
     Active Substance: CEFTRIAXONE SODIUM
     Dosage: FOR THREE WEEKS
     Route: 042

REACTIONS (41)
  - Pneumonia [Unknown]
  - Venous pressure increased [Unknown]
  - Weight increased [Not Recovered/Not Resolved]
  - Immune system disorder [Unknown]
  - Malaise [Unknown]
  - Muscle spasms [Unknown]
  - Pain in jaw [Not Recovered/Not Resolved]
  - Autoimmune disorder [Not Recovered/Not Resolved]
  - Tremor [Unknown]
  - Vasospasm [Unknown]
  - Anaemia [Unknown]
  - Ageusia [Not Recovered/Not Resolved]
  - Immune system disorder [Not Recovered/Not Resolved]
  - Hepatotoxicity [Unknown]
  - Burning sensation [Not Recovered/Not Resolved]
  - Palpitations [Unknown]
  - Abdominal pain [Unknown]
  - Ear pain [Not Recovered/Not Resolved]
  - Suicidal ideation [Not Recovered/Not Resolved]
  - Nervous system disorder [Not Recovered/Not Resolved]
  - Gastrointestinal disorder [Not Recovered/Not Resolved]
  - Splenomegaly [Unknown]
  - Lymphadenopathy [Unknown]
  - Neuralgia [Not Recovered/Not Resolved]
  - Pain in extremity [Unknown]
  - Hypersomnia [Unknown]
  - Vasodilatation [Unknown]
  - Diarrhoea [Not Recovered/Not Resolved]
  - Blindness transient [Not Recovered/Not Resolved]
  - Liver disorder [Unknown]
  - Anosmia [Not Recovered/Not Resolved]
  - Eye irritation [Not Recovered/Not Resolved]
  - Eye pain [Not Recovered/Not Resolved]
  - Polyneuropathy [Unknown]
  - Blood magnesium decreased [Unknown]
  - Dermatitis [Not Recovered/Not Resolved]
  - Suicide attempt [Unknown]
  - Lymphoedema [Unknown]
  - Gait disturbance [Unknown]
  - Electrolyte depletion [Unknown]
  - Abdominal distension [Not Recovered/Not Resolved]

NARRATIVE: CASE EVENT DATE: 199409
